FAERS Safety Report 21707627 (Version 1)
Quarter: 2022Q4

REPORT INFORMATION
  Report Type: Spontaneous
  Country: IR (occurrence: IR)
  Receive Date: 20221209
  Receipt Date: 20221209
  Transmission Date: 20230113
  Serious: Yes (Life-Threatening)
  Sender: FDA-Public Use
  Company Number: IR-MLMSERVICE-20221121-3932854-1

PATIENT
  Age: 73 Year
  Sex: Female

DRUGS (12)
  1. DEXAMETHASONE [Suspect]
     Active Substance: DEXAMETHASONE
     Indication: COVID-19
     Route: 065
     Dates: start: 202105, end: 2021
  2. PREDNISOLONE [Suspect]
     Active Substance: PREDNISOLONE
     Indication: COVID-19
     Dosage: 25-175 MG DAILY
     Route: 065
     Dates: start: 202105
  3. REMDESIVIR [Concomitant]
     Active Substance: REMDESIVIR
     Indication: COVID-19
     Dosage: DAILY DOSE OF 200-100 MG
     Dates: start: 202105
  4. INTERFERON BETA-1A [Concomitant]
     Active Substance: INTERFERON BETA-1A
     Indication: COVID-19
     Dosage: EVERY DAY IN THE FIRST WEEK.
     Dates: start: 202105
  5. HEPARIN [Concomitant]
     Active Substance: HEPARIN SODIUM
     Indication: COVID-19
     Dates: start: 202105
  6. CEFTRIAXONE [Concomitant]
     Active Substance: CEFTRIAXONE
     Indication: COVID-19
     Dates: start: 202105
  7. LASIX [Concomitant]
     Active Substance: FUROSEMIDE
     Indication: COVID-19
     Dates: start: 202105
  8. INSULIN NOS [Concomitant]
     Active Substance: INSULIN NOS
     Indication: Blood glucose increased
     Dates: start: 202105, end: 2021
  9. AMPHOTERICIN B [Concomitant]
     Active Substance: AMPHOTERICIN B
     Indication: Arteriosclerosis
     Dosage: SINGLE DOSE
     Dates: start: 202105, end: 202105
  10. AMPHOTERICIN B [Concomitant]
     Active Substance: AMPHOTERICIN B
     Dates: start: 202105, end: 2021
  11. GLYBURIDE [Concomitant]
     Active Substance: GLYBURIDE
     Indication: Product used for unknown indication
     Dates: end: 202105
  12. METFORMIN HYDROCHLORIDE\SITAGLIPTIN [Concomitant]
     Active Substance: METFORMIN HYDROCHLORIDE\SITAGLIPTIN
     Indication: Product used for unknown indication
     Dosage: ZIPMET AT A DOSE OF 50/1000
     Dates: start: 202105

REACTIONS (1)
  - Rhinocerebral mucormycosis [Recovering/Resolving]

NARRATIVE: CASE EVENT DATE: 20210601
